FAERS Safety Report 5208814-5 (Version None)
Quarter: 2007Q1

REPORT INFORMATION
  Report Type: 
  Country: None (occurrence: None)
  Receive Date: 20070116
  Receipt Date: 20070109
  Transmission Date: 20070707
  Serious: Yes (Other)
  Sender: FDA-Public Use
  Company Number: JP-ELI_LILLY_AND_COMPANY-JP200701002289

PATIENT
  Age: 71 Year
  Sex: Female

DRUGS (2)
  1. GEMZAR [Suspect]
     Indication: NON-SMALL CELL LUNG CANCER STAGE IV
     Dosage: 1000 MG/M2, OTHER
     Route: 050
     Dates: start: 20050513, end: 20050811
  2. CARBOPLATIN [Concomitant]
     Indication: NON-SMALL CELL LUNG CANCER STAGE IV
     Dosage: UNK, UNK
     Dates: start: 20050513

REACTIONS (1)
  - ENTEROCOLITIS [None]
